FAERS Safety Report 4662621-0 (Version None)
Quarter: 2005Q2

REPORT INFORMATION
  Report Type: 
  Country: None (occurrence: None)
  Receive Date: 20050516
  Receipt Date: 20050425
  Transmission Date: 20051028
  Serious: Yes (Death, Disabling)
  Sender: FDA-Public Use
  Company Number: 2005AP02546

PATIENT
  Age: 77 Year
  Sex: Female

DRUGS (7)
  1. ACCOLATE [Suspect]
     Indication: ASTHMA
     Route: 048
     Dates: start: 20041112, end: 20050405
  2. NORVASC [Concomitant]
     Route: 048
  3. TOYOFAROL [Concomitant]
     Route: 048
  4. MUCODYNE [Concomitant]
     Route: 048
  5. THEO-DUR [Concomitant]
     Route: 048
  6. SILECE [Concomitant]
  7. HALCION [Concomitant]
     Route: 048

REACTIONS (4)
  - BLOOD BILIRUBIN INCREASED [None]
  - DECREASED APPETITE [None]
  - HEPATIC FUNCTION ABNORMAL [None]
  - JAUNDICE [None]
